FAERS Safety Report 20774052 (Version 1)
Quarter: 2022Q2

REPORT INFORMATION
  Report Type: Spontaneous
  Country: GB (occurrence: GB)
  Receive Date: 20220502
  Receipt Date: 20220502
  Transmission Date: 20220721
  Serious: Yes (Disabling, Other)
  Sender: FDA-Public Use
  Company Number: GB-MHRA-MED-202204260024019070-NMG6U

PATIENT
  Age: 27 Year
  Sex: Female

DRUGS (2)
  1. VENLAFAXINE [Suspect]
     Active Substance: VENLAFAXINE HYDROCHLORIDE
     Indication: Depression
     Dosage: 225 MILLIGRAM
     Dates: start: 201702
  2. LEVOTHYROXINE [Concomitant]
     Active Substance: LEVOTHYROXINE
     Indication: Hypothyroidism
     Dosage: UNK
     Dates: start: 2018

REACTIONS (15)
  - Heavy menstrual bleeding [Not Recovered/Not Resolved]
  - Overweight [Recovering/Resolving]
  - Feeling abnormal [Not Recovered/Not Resolved]
  - Vertigo [Not Recovered/Not Resolved]
  - Dizziness [Not Recovered/Not Resolved]
  - Suicidal ideation [Recovered/Resolved]
  - Diarrhoea [Not Recovered/Not Resolved]
  - Palpitations [Not Recovered/Not Resolved]
  - Confusional state [Not Recovered/Not Resolved]
  - Somnolence [Not Recovered/Not Resolved]
  - Migraine [Not Recovered/Not Resolved]
  - Myalgia [Not Recovered/Not Resolved]
  - Vision blurred [Recovered/Resolved]
  - Acne [Recovering/Resolving]
  - Hyperhidrosis [Not Recovered/Not Resolved]
